FAERS Safety Report 8036708-9 (Version None)
Quarter: 2012Q1

REPORT INFORMATION
  Report Type: 
  Country: None (occurrence: None)
  Receive Date: 20120111
  Receipt Date: 20120102
  Transmission Date: 20120608
  Serious: Yes (Other)
  Sender: FDA-Public Use
  Company Number: IT-TEVA-316216ISR

PATIENT
  Sex: Female

DRUGS (3)
  1. INDAPAMIDE [Suspect]
  2. ALPRAZOLAM [Suspect]
  3. MIRTAZAPINE [Suspect]

REACTIONS (3)
  - APHASIA [None]
  - COORDINATION ABNORMAL [None]
  - SOPOR [None]
